FAERS Safety Report 6861093-5 (Version None)
Quarter: 2010Q3

REPORT INFORMATION
  Report Type: 
  Country: None (occurrence: None)
  Receive Date: 20100720
  Receipt Date: 20100607
  Transmission Date: 20110219
  Serious: Yes (Other)
  Sender: FDA-Public Use
  Company Number: US-BAXTER-2010BH005743

PATIENT
  Age: 39 Year
  Sex: Female
  Weight: 65 kg

DRUGS (26)
  1. HEPARIN SODIUM [Suspect]
     Indication: HAEMODIALYSIS
     Route: 065
     Dates: start: 20080229
  2. HEPARIN SODIUM [Suspect]
     Route: 058
     Dates: start: 20080303, end: 20080305
  3. HEPARIN SODIUM [Suspect]
     Route: 058
     Dates: start: 20080310, end: 20080311
  4. HEPARIN SODIUM [Suspect]
     Route: 042
     Dates: start: 20080304, end: 20080318
  5. HEPARIN SODIUM [Suspect]
     Route: 042
     Dates: start: 20080304, end: 20080318
  6. HEPARIN SODIUM [Suspect]
     Route: 042
     Dates: start: 20080311, end: 20080311
  7. ASPIRIN [Concomitant]
     Indication: PRODUCT USED FOR UNKNOWN INDICATION
     Route: 065
  8. PLAVIX [Concomitant]
     Indication: PRODUCT USED FOR UNKNOWN INDICATION
     Route: 065
  9. EPOGEN [Concomitant]
     Indication: PRODUCT USED FOR UNKNOWN INDICATION
     Route: 065
  10. LISINOPRIL [Concomitant]
     Indication: PRODUCT USED FOR UNKNOWN INDICATION
     Route: 065
  11. METOPROLOL [Concomitant]
     Indication: PRODUCT USED FOR UNKNOWN INDICATION
     Route: 065
  12. MIRTAZAPINE [Concomitant]
     Indication: PRODUCT USED FOR UNKNOWN INDICATION
     Route: 065
  13. AVELOX [Concomitant]
     Indication: PRODUCT USED FOR UNKNOWN INDICATION
     Route: 065
  14. SIMVASTATIN [Concomitant]
     Indication: PRODUCT USED FOR UNKNOWN INDICATION
     Route: 065
  15. PEPCID [Concomitant]
     Indication: PRODUCT USED FOR UNKNOWN INDICATION
     Route: 065
  16. LABETALOL HCL [Concomitant]
     Indication: PRODUCT USED FOR UNKNOWN INDICATION
     Route: 065
  17. NORCO [Concomitant]
     Indication: PRODUCT USED FOR UNKNOWN INDICATION
     Route: 048
  18. RENAGEL [Concomitant]
     Indication: PRODUCT USED FOR UNKNOWN INDICATION
     Route: 065
  19. DESMOPRESSIN ACETATE [Concomitant]
     Indication: PRODUCT USED FOR UNKNOWN INDICATION
     Route: 065
  20. NIFEDIPINE [Concomitant]
     Indication: PRODUCT USED FOR UNKNOWN INDICATION
     Route: 065
  21. ACTIVASE ^ROCHE^ [Concomitant]
     Indication: PRODUCT USED FOR UNKNOWN INDICATION
     Route: 065
  22. HYDROMORPHONE [Concomitant]
     Indication: PRODUCT USED FOR UNKNOWN INDICATION
     Route: 065
  23. CEFAZOLIN [Concomitant]
     Indication: PRODUCT USED FOR UNKNOWN INDICATION
     Route: 065
  24. PAPAVERINE [Concomitant]
     Indication: PRODUCT USED FOR UNKNOWN INDICATION
     Route: 065
  25. ESZOPICLONE [Concomitant]
     Indication: PRODUCT USED FOR UNKNOWN INDICATION
     Route: 065
  26. HYDRALAZINE HCL [Concomitant]
     Indication: PRODUCT USED FOR UNKNOWN INDICATION
     Route: 065

REACTIONS (24)
  - ANAEMIA [None]
  - ANXIETY [None]
  - ARTERIOVENOUS FISTULA SITE COMPLICATION [None]
  - AZOTAEMIA [None]
  - CATHETER SITE HAEMORRHAGE [None]
  - DIZZINESS [None]
  - DYSPNOEA [None]
  - FEELING HOT [None]
  - HAEMATOMA [None]
  - HAEMORRHAGE [None]
  - HAEMORRHAGIC DIATHESIS [None]
  - HEPARIN-INDUCED THROMBOCYTOPENIA [None]
  - HYPOAESTHESIA [None]
  - HYPOTENSION [None]
  - HYPOVOLAEMIA [None]
  - MOTOR DYSFUNCTION [None]
  - NECROSIS [None]
  - OEDEMA PERIPHERAL [None]
  - PAIN [None]
  - PLATELET DISORDER [None]
  - RENAL IMPAIRMENT [None]
  - SCAR [None]
  - VASCULITIS [None]
  - VENOUS STENOSIS [None]
